FAERS Safety Report 8463837-8 (Version None)
Quarter: 2012Q2

REPORT INFORMATION
  Report Type: 
  Country: None (occurrence: None)
  Receive Date: 20120625
  Receipt Date: 20120612
  Transmission Date: 20120825
  Serious: Yes (Life-Threatening, Hospitalization)
  Sender: FDA-Public Use
  Company Number: HU-CELGENEUS-076-21880-12060029

PATIENT
  Sex: Male

DRUGS (18)
  1. CIPROFLOXACIN [Concomitant]
     Route: 065
     Dates: start: 20120522
  2. ACYCLOVIR [Concomitant]
     Route: 065
     Dates: start: 20120522
  3. ENOXAPARIN SODIUM [Concomitant]
     Route: 065
     Dates: start: 20120522
  4. SUPPOSITORIUM ANALGETICUM FORTE [Concomitant]
     Route: 065
     Dates: end: 20120529
  5. AZULFIDINE [Concomitant]
     Route: 065
     Dates: start: 20111201
  6. REVLIMID [Suspect]
     Indication: MULTIPLE MYELOMA
     Route: 048
  7. ELOTUZUMAB [Suspect]
     Indication: MULTIPLE MYELOMA
     Route: 065
  8. HIDROXYMORPHON [Concomitant]
     Route: 065
     Dates: end: 20120529
  9. TRAMADOL HCL [Concomitant]
     Route: 065
  10. PANTOPRAZOLE [Concomitant]
     Route: 065
     Dates: start: 20080718
  11. CHLOROQUINE [Concomitant]
     Route: 065
     Dates: start: 20111201, end: 20120529
  12. INDAPAMID [Concomitant]
     Route: 065
     Dates: end: 20120529
  13. TOLPERISONE [Concomitant]
     Route: 065
     Dates: end: 20120529
  14. FLUCONAZOLE [Concomitant]
     Route: 065
     Dates: start: 20120601
  15. DEXAMETHASONE [Suspect]
     Indication: MULTIPLE MYELOMA
     Route: 065
  16. VALSARTAN  AND HYDROCHLOROTHIAZIDE [Concomitant]
     Route: 065
     Dates: end: 20120529
  17. FENTANYL [Concomitant]
     Route: 065
     Dates: start: 20120530
  18. ZOLEDRONIC ACID [Concomitant]
     Route: 065
     Dates: start: 20120425

REACTIONS (3)
  - TUMOUR LYSIS SYNDROME [None]
  - RENAL FAILURE ACUTE [None]
  - ANAEMIA [None]
